FAERS Safety Report 12234530 (Version 2)
Quarter: 2016Q2

REPORT INFORMATION
  Report Type: Report from Study
  Country: US (occurrence: US)
  Receive Date: 20160404
  Receipt Date: 20160601
  Transmission Date: 20160815
  Serious: Yes (Other)
  Sender: FDA-Public Use
  Company Number: US-MDT-ADR-2016-00617

PATIENT
  Age: 61 Year
  Sex: Female

DRUGS (6)
  1. BUPIVACAINE. [Suspect]
     Active Substance: BUPIVACAINE
     Dosage: 7.607 MG/DAY
     Route: 037
     Dates: end: 20160209
  2. BUPIVACAINE. [Suspect]
     Active Substance: BUPIVACAINE
     Dosage: 7.607 MG/DAY
     Route: 037
     Dates: start: 20160209
  3. COMPOUNDED BACLOFEN [Suspect]
     Active Substance: BACLOFEN
     Dosage: 228.22 MCG/DAY
     Route: 037
     Dates: start: 20160209
  4. DILAUDID [Suspect]
     Active Substance: HYDROMORPHONE HYDROCHLORIDE
     Dosage: 3.8037 MG/DAY
     Route: 037
     Dates: start: 20160209
  5. DILAUDID [Suspect]
     Active Substance: HYDROMORPHONE HYDROCHLORIDE
     Dosage: 3.8037 MG/DAY
     Route: 037
     Dates: end: 20160209
  6. COMPOUNDED BACLOFEN [Suspect]
     Active Substance: BACLOFEN
     Dosage: 228.22 MCG/DAY
     Route: 037
     Dates: end: 20160209

REACTIONS (7)
  - Balance disorder [Recovered/Resolved]
  - Cerebrospinal fluid leakage [Recovered/Resolved]
  - Asthenia [Recovered/Resolved]
  - Muscular weakness [Recovered/Resolved]
  - Adverse drug reaction [Recovered/Resolved with Sequelae]
  - Hypoaesthesia [Recovered/Resolved]
  - Implant site extravasation [Recovered/Resolved]
